FAERS Safety Report 9911465 (Version 1)
Quarter: 2014Q1

REPORT INFORMATION
  Report Type: Spontaneous
  Country: TR (occurrence: TR)
  Receive Date: 20140219
  Receipt Date: 20140219
  Transmission Date: 20141002
  Serious: Yes (Hospitalization, Other)
  Sender: FDA-Public Use
  Company Number: PHHY2014TR016605

PATIENT
  Age: 63 Year
  Sex: Female

DRUGS (2)
  1. WARFARIN [Suspect]
     Indication: PULMONARY EMBOLISM
     Dosage: 5 MG/DAY
  2. HERBAL EXTRACTS NOS [Interacting]

REACTIONS (5)
  - Toxicity to various agents [Unknown]
  - Haematuria [Recovered/Resolved]
  - Rash [Recovered/Resolved]
  - International normalised ratio increased [Recovered/Resolved]
  - Drug interaction [Unknown]
